FAERS Safety Report 7785458-2 (Version None)
Quarter: 2011Q3

REPORT INFORMATION
  Report Type: 
  Country: None (occurrence: None)
  Receive Date: 20110929
  Receipt Date: 20110916
  Transmission Date: 20111222
  Serious: Yes (Hospitalization, Other)
  Sender: FDA-Public Use
  Company Number: PHFR2011GB02141

PATIENT
  Sex: Male
  Weight: 89.4 kg

DRUGS (5)
  1. HYOSCINE HYDROBROMIDE [Concomitant]
     Indication: SALIVARY HYPERSECRETION
     Dosage: 4 MG, TID
     Route: 048
  2. VENLAFAXINE HYDROCHLORIDE [Concomitant]
     Dosage: 225 MG/DAY
     Route: 048
     Dates: end: 20110401
  3. DIAZEPAM [Concomitant]
     Indication: ANXIETY
     Dosage: 5 MG, TID
     Route: 048
  4. CLOZAPINE [Suspect]
     Dosage: 225 MG/DAY
     Route: 048
  5. CLOZAPINE [Suspect]
     Indication: SCHIZOPHRENIA
     Dosage: 225 MG, BID
     Route: 048
     Dates: start: 19900312, end: 20110423

REACTIONS (20)
  - EMOTIONAL DISTRESS [None]
  - RENAL IMPAIRMENT [None]
  - ASPARTATE AMINOTRANSFERASE INCREASED [None]
  - SALIVARY HYPERSECRETION [None]
  - ELECTROLYTE IMBALANCE [None]
  - MENTAL IMPAIRMENT [None]
  - WHITE BLOOD CELL COUNT INCREASED [None]
  - ALANINE AMINOTRANSFERASE INCREASED [None]
  - HYPERHIDROSIS [None]
  - BLOOD UREA INCREASED [None]
  - RHABDOMYOLYSIS [None]
  - LIVER FUNCTION TEST ABNORMAL [None]
  - GAMMA-GLUTAMYLTRANSFERASE INCREASED [None]
  - BLOOD BILIRUBIN ABNORMAL [None]
  - FULL BLOOD COUNT INCREASED [None]
  - BLOOD CREATININE INCREASED [None]
  - BLOOD CREATINE PHOSPHOKINASE INCREASED [None]
  - NEUROLEPTIC MALIGNANT SYNDROME [None]
  - AGITATION [None]
  - TREMOR [None]
